FAERS Safety Report 12657570 (Version 2)
Quarter: 2016Q3

REPORT INFORMATION
  Report Type: Report from Study
  Country: US (occurrence: CA)
  Receive Date: 20160816
  Receipt Date: 20160906
  Transmission Date: 20161109
  Serious: No
  Sender: FDA-Public Use
  Company Number: US-MYLANLABS-2016M1033772

PATIENT

DRUGS (1)
  1. EPINEPHRINE. [Suspect]
     Active Substance: EPINEPHRINE
     Indication: HYPERSENSITIVITY
     Dosage: UNK
     Dates: start: 20160721, end: 20160721

REACTIONS (9)
  - Hypersensitivity [Not Recovered/Not Resolved]
  - Epistaxis [Recovered/Resolved]
  - Headache [Not Recovered/Not Resolved]
  - Palpitations [Recovered/Resolved]
  - Dysgeusia [Not Recovered/Not Resolved]
  - Dyspnoea [Recovered/Resolved]
  - Hypertension [Recovered/Resolved]
  - Tremor [Recovered/Resolved]
  - Dizziness [Recovered/Resolved]

NARRATIVE: CASE EVENT DATE: 20160721
